FAERS Safety Report 5123110-2 (Version None)
Quarter: 2006Q4

REPORT INFORMATION
  Report Type: 
  Country: None (occurrence: None)
  Receive Date: 20061009
  Receipt Date: 20060424
  Transmission Date: 20070319
  Serious: Yes (Other)
  Sender: FDA-Public Use
  Company Number: JP-AVENTIS-200611346JP

PATIENT
  Age: 73 Year
  Sex: Female

DRUGS (8)
  1. AMARYL [Suspect]
     Indication: DIABETES MELLITUS
     Route: 048
  2. GLUCOBAY [Suspect]
     Indication: DIABETES MELLITUS
     Route: 048
     Dates: start: 20060330, end: 20060416
  3. GLUCOBAY [Suspect]
     Route: 048
     Dates: start: 20060417, end: 20060425
  4. RINGEREAZE [Suspect]
     Indication: BACK PAIN
     Dosage: DOSE: 3TABLETS
     Route: 048
  5. CALFINA [Concomitant]
     Route: 048
  6. MUCOSTA [Concomitant]
     Route: 048
  7. BONALON [Concomitant]
     Route: 048
  8. ASPIRIN [Concomitant]
     Route: 048

REACTIONS (2)
  - ERYTHEMA MULTIFORME [None]
  - LYMPHOCYTE STIMULATION TEST POSITIVE [None]
